FAERS Safety Report 24443999 (Version 2)
Quarter: 2024Q4

REPORT INFORMATION
  Report Type: Report from Study
  Country: US (occurrence: US)
  Receive Date: 20241016
  Receipt Date: 20241017
  Transmission Date: 20250114
  Serious: No
  Sender: ROCHE
  Company Number: US-ROCHE-2292986

PATIENT
  Age: 46 Year
  Sex: Female
  Weight: 90.72 kg

DRUGS (2)
  1. RITUXAN [Suspect]
     Active Substance: RITUXIMAB
     Indication: Psoriasis
     Dosage: ONGOING:NO, INFUSE 500 MG IV EVERY 6 MONTHS, STRENGTH/SIZE: VIAL
     Route: 042
     Dates: start: 20230412, end: 20240412
  2. RITUXAN [Suspect]
     Active Substance: RITUXIMAB
     Indication: Pemphigus
     Dosage: ONGOING:YES
     Route: 042
     Dates: start: 201901

REACTIONS (2)
  - Off label use [Unknown]
  - No adverse event [Unknown]
